FAERS Safety Report 5413224-1 (Version None)
Quarter: 2007Q3

REPORT INFORMATION
  Report Type: 
  Country: None (occurrence: None)
  Receive Date: 20070814
  Receipt Date: 20070806
  Transmission Date: 20080115
  Serious: Yes (Other)
  Sender: FDA-Public Use
  Company Number: PHBS2007JP11965

PATIENT
  Age: 28 Year
  Sex: Female
  Weight: 40 kg

DRUGS (7)
  1. RITALIN [Suspect]
     Indication: MALAISE
     Dosage: 10 MG/DAY
     Route: 048
     Dates: start: 20070316, end: 20070531
  2. RITALIN [Suspect]
     Dosage: 20 MG/DAY
     Route: 048
     Dates: start: 20070601, end: 20070603
  3. PAXIL [Suspect]
     Indication: MALAISE
     Dosage: 20 MG/DAY
     Route: 048
     Dates: start: 20060908, end: 20070528
  4. PAXIL [Suspect]
     Dosage: 10 MG/DAY
     Route: 048
     Dates: start: 20070529, end: 20070531
  5. DEPAS [Concomitant]
     Indication: INSOMNIA
     Dosage: 1 MG/DAY
     Dates: start: 20070119
  6. DEPAS [Concomitant]
     Dosage: 0.5 MG/DAY
     Route: 048
  7. CORTRIL [Concomitant]
     Indication: MALAISE
     Dosage: 10 MG/DAY
     Route: 048
     Dates: start: 20070420

REACTIONS (8)
  - FEELING ABNORMAL [None]
  - HEADACHE [None]
  - HYPERHIDROSIS [None]
  - NAUSEA [None]
  - PHOTOPHOBIA [None]
  - POLLAKIURIA [None]
  - PYREXIA [None]
  - VOMITING [None]
